FAERS Safety Report 4405255-5 (Version None)
Quarter: 2004Q3

REPORT INFORMATION
  Report Type: 
  Country: None (occurrence: None)
  Receive Date: 20040723
  Receipt Date: 20040609
  Transmission Date: 20050211
  Serious: Yes (Death, Hospitalization)
  Sender: FDA-Public Use
  Company Number: JP-BRISTOL-MYERS SQUIBB COMPANY-12609970

PATIENT
  Age: 64 Year
  Sex: Male

DRUGS (3)
  1. HYDREA [Suspect]
     Indication: POLYCYTHAEMIA VERA
     Dosage: 500 TO 1500 MG FROM 09-JAN-1995 TO 31-JUL-2000 1000 MG FROM 26-APR-2002 TO 09-APR-2002
     Route: 048
  2. CYMERIN [Concomitant]
     Indication: POLYCYTHAEMIA VERA
     Route: 042
     Dates: start: 20001004, end: 20020430
  3. LEUKERIN [Suspect]
     Indication: POLYCYTHAEMIA VERA
     Route: 048
     Dates: start: 20001001, end: 20020422

REACTIONS (2)
  - INTERSTITIAL LUNG DISEASE [None]
  - LYMPHOMA [None]
